FAERS Safety Report 12448837 (Version 2)
Quarter: 2016Q3

REPORT INFORMATION
  Report Type: Spontaneous
  Country: JP (occurrence: JP)
  Receive Date: 20160608
  Receipt Date: 20160704
  Transmission Date: 20161109
  Serious: Yes (Hospitalization, Other)
  Sender: FDA-Public Use
  Company Number: PHJP2016JP002365

PATIENT
  Age: 32 Year
  Sex: Female
  Weight: 57 kg

DRUGS (7)
  1. KAYWAN [Concomitant]
     Indication: HAEMORRHAGE PROPHYLAXIS
     Dosage: 10 MG, QD
     Route: 048
     Dates: start: 20160219, end: 20160220
  2. E KEPPRA [Concomitant]
     Active Substance: LEVETIRACETAM
     Dosage: 1250 MG, BID
     Route: 048
     Dates: start: 20160115, end: 20160330
  3. TEGRETOL [Suspect]
     Active Substance: CARBAMAZEPINE
     Indication: EPILEPSY
     Dosage: 200 MG IN THE MORNING AND 300 MG IN THE EVENING
     Route: 048
     Dates: end: 20160330
  4. TEGRETOL [Suspect]
     Active Substance: CARBAMAZEPINE
     Dosage: 400 MG, QD
     Route: 048
     Dates: start: 20160330
  5. ATONIN-O [Concomitant]
     Indication: LABOUR INDUCTION
     Dosage: 5 IU, QD
     Route: 041
     Dates: start: 20160220, end: 20160220
  6. E KEPPRA [Concomitant]
     Active Substance: LEVETIRACETAM
     Indication: EPILEPSY
     Dosage: 1000 MG, BID
     Route: 048
     Dates: start: 20151204, end: 20160114
  7. E KEPPRA [Concomitant]
     Active Substance: LEVETIRACETAM
     Dosage: 2000 MG, QD
     Route: 048
     Dates: start: 20160330

REACTIONS (6)
  - Amniorrhexis [Unknown]
  - Delivery [Unknown]
  - Generalised tonic-clonic seizure [Unknown]
  - Maternal exposure during pregnancy [Unknown]
  - Petit mal epilepsy [Unknown]
  - Normal newborn [Unknown]

NARRATIVE: CASE EVENT DATE: 201510
